FAERS Safety Report 5097235-4 (Version None)
Quarter: 2006Q3

REPORT INFORMATION
  Report Type: 
  Country: None (occurrence: None)
  Receive Date: 20060906
  Receipt Date: 20060905
  Transmission Date: 20061208
  Serious: Yes (Hospitalization)
  Sender: FDA-Public Use
  Company Number: 2006AC01607

PATIENT
  Age: 25862 Day
  Sex: Male
  Weight: 80 kg

DRUGS (7)
  1. SEROQUEL [Suspect]
     Indication: DEPRESSION
     Route: 048
     Dates: start: 20040101, end: 20060629
  2. REQUIP [Suspect]
     Indication: PARKINSON'S DISEASE
     Dates: start: 20050701, end: 20060628
  3. PANTOZOL [Suspect]
     Indication: PROPHYLAXIS
     Dates: start: 20040101, end: 20060629
  4. NAPROXENUM [Concomitant]
  5. OXAZEPAMUM [Concomitant]
  6. MADOPAR [Concomitant]
  7. PAROXETINUM [Concomitant]

REACTIONS (1)
  - HEPATITIS [None]
